FAERS Safety Report 4464660-1 (Version None)
Quarter: 2004Q3

REPORT INFORMATION
  Report Type: 
  Country: None (occurrence: None)
  Receive Date: 20040927
  Receipt Date: 20040917
  Transmission Date: 20050211
  Serious: Yes (Hospitalization)
  Sender: FDA-Public Use
  Company Number: 2004UW18655

PATIENT
  Age: 39 Year
  Sex: Female
  Weight: 80 kg

DRUGS (4)
  1. BUDESONIDE + FORMOTEROL (SYMBICORT) [Suspect]
     Indication: ASTHMA
     Dosage: 160/4.5 MCG/INH
     Route: 055
     Dates: start: 20040413
  2. BUDESONIDE + FORMOTEROL (SYMBICORT) [Suspect]
     Indication: ASTHMA
     Dosage: 160/4.5 MCG/INH
     Route: 055
     Dates: start: 20040413
  3. SERETIDE EVOHALER [Suspect]
     Dosage: 25/125 MG
     Dates: start: 20040413
  4. BRICANYL [Suspect]
     Dosage: 0.4 MG PRN; IN
     Route: 055
     Dates: start: 20040413

REACTIONS (3)
  - BACK PAIN [None]
  - PNEUMONIA [None]
  - VOMITING [None]
